FAERS Safety Report 6869197-8 (Version None)
Quarter: 2010Q3

REPORT INFORMATION
  Report Type: 
  Country: None (occurrence: None)
  Receive Date: 20100722
  Receipt Date: 20081021
  Transmission Date: 20110219
  Serious: Yes (Other)
  Sender: FDA-Public Use
  Company Number: US-PFIZER INC-2008057971

PATIENT
  Sex: Female
  Weight: 93.6 kg

DRUGS (3)
  1. CHANTIX [Suspect]
     Indication: SMOKING CESSATION THERAPY
     Dates: start: 20080601
  2. SYNTHROID [Concomitant]
     Indication: HYPOTHYROIDISM
  3. IBUPROFEN [Concomitant]

REACTIONS (3)
  - AGGRESSION [None]
  - ANXIETY [None]
  - CRYING [None]
